FAERS Safety Report 5026636-5 (Version None)
Quarter: 2006Q2

REPORT INFORMATION
  Report Type: 
  Country: None (occurrence: None)
  Receive Date: 20060615
  Receipt Date: 20060208
  Transmission Date: 20061013
  Serious: Yes (Other)
  Sender: FDA-Public Use
  Company Number: US-GLAXOSMITHKLINE-A0592877A

PATIENT
  Sex: Female

DRUGS (3)
  1. FLOVENT [Suspect]
     Indication: ASTHMA
     Dosage: 1PUFF PER DAY
     Route: 055
     Dates: start: 20050701
  2. NORVASC [Concomitant]
  3. CALCIUM SALT [Concomitant]

REACTIONS (8)
  - DEAFNESS NEUROSENSORY [None]
  - DIZZINESS [None]
  - DRUG INEFFECTIVE [None]
  - EPISTAXIS [None]
  - HEARING IMPAIRED [None]
  - PHARMACEUTICAL PRODUCT COMPLAINT [None]
  - RHINITIS [None]
  - SINUSITIS [None]
